FAERS Safety Report 5128072-X (Version None)
Quarter: 2006Q4

REPORT INFORMATION
  Report Type: 
  Country: None (occurrence: None)
  Receive Date: 20061010
  Receipt Date: 20060926
  Transmission Date: 20070319
  Serious: Yes (Hospitalization)
  Sender: FDA-Public Use
  Company Number: 148079ISR

PATIENT
  Sex: Male

DRUGS (1)
  1. GABAPENTIN [Suspect]
     Dosage: ORAL
     Route: 048

REACTIONS (2)
  - CIRCULATORY COLLAPSE [None]
  - MALAISE [None]
